FAERS Safety Report 8601108-7 (Version None)
Quarter: 2012Q3

REPORT INFORMATION
  Report Type: 
  Country: None (occurrence: None)
  Receive Date: 20120817
  Receipt Date: 20120813
  Transmission Date: 20120928
  Serious: Yes (Other)
  Sender: FDA-Public Use
  Company Number: PHHY2012BR062283

PATIENT
  Sex: Male

DRUGS (2)
  1. AMLODOPINE BESYLATE AND VALSARTAN [Suspect]
     Dosage: 1 DF A DAY (320MG VALS AND 10MG AMLO)
  2. AMLODOPINE BESYLATE AND VALSARTAN [Suspect]
     Indication: HYPERTENSION
     Dosage: 1 DF A DAY (320MG VALS AND 10MG AMLO)
     Dates: start: 20110101

REACTIONS (3)
  - MALAISE [None]
  - BLOOD PRESSURE SYSTOLIC INCREASED [None]
  - CARDIAC DISORDER [None]
